FAERS Safety Report 7119949-4 (Version None)
Quarter: 2010Q4

REPORT INFORMATION
  Report Type: 
  Country: None (occurrence: None)
  Receive Date: 20101123
  Receipt Date: 20101118
  Transmission Date: 20110411
  Serious: Yes (Hospitalization, Other)
  Sender: FDA-Public Use
  Company Number: FR-PFIZER INC-2010151466

PATIENT
  Age: 83 Year
  Sex: Female

DRUGS (7)
  1. AMLOR [Suspect]
     Indication: HYPERTENSION
     Dosage: 5 MG, 1X/DAY
     Route: 048
  2. COVERAM [Interacting]
     Indication: HYPERTENSION
     Dosage: 5MG/5MG, 1X/DAY
     Route: 048
  3. TEMERIT [Interacting]
     Indication: HYPERTENSION
     Dosage: 0.5 DF, 1X/DAY
     Route: 048
  4. KARDEGIC [Concomitant]
  5. CRESTOR [Concomitant]
     Dosage: 5 MG, UNK
  6. LEVOTHYROXINE SODIUM [Concomitant]
     Dosage: 125 UG, UNK
  7. NORSET [Concomitant]
     Dosage: 15 MG, UNK

REACTIONS (3)
  - DRUG INTERACTION [None]
  - MALAISE [None]
  - ORTHOSTATIC HYPOTENSION [None]
